FAERS Safety Report 4453617-2 (Version None)
Quarter: 2004Q3

REPORT INFORMATION
  Report Type: 
  Country: None (occurrence: None)
  Receive Date: 20040907
  Receipt Date: 20040608
  Transmission Date: 20050211
  Serious: Yes (Other)
  Sender: FDA-Public Use
  Company Number: 2004213202US

PATIENT
  Age: 69 Year
  Sex: Female
  Weight: 63.5 kg

DRUGS (1)
  1. DETROL LA [Suspect]
     Indication: POLLAKIURIA
     Dosage: WEEKLY, ORAL
     Route: 048

REACTIONS (1)
  - ANAPHYLACTIC REACTION [None]
